FAERS Safety Report 4816827-8 (Version None)
Quarter: 2005Q4

REPORT INFORMATION
  Report Type: 
  Country: None (occurrence: None)
  Receive Date: 20051101
  Receipt Date: 20051025
  Transmission Date: 20060501
  Serious: Yes (Other)
  Sender: FDA-Public Use
  Company Number: ES-BOEHRINGER INGELHEIM PHARMACEUTICALS, INC.-2005-DE-04439GD

PATIENT

DRUGS (3)
  1. NEVIRAPINE [Suspect]
     Indication: HIV INFECTION
     Route: 048
  2. DIDANOSINE [Suspect]
     Indication: HIV INFECTION
     Dosage: 250 MG FOR BODY WEIGHT {60 KG, 400 MG FOR BODY WEIGHT }/= 60 KG
     Route: 048
  3. LAMIVUDINE [Suspect]
     Indication: HIV INFECTION
     Route: 048

REACTIONS (2)
  - DRUG INEFFECTIVE [None]
  - VIRAL MUTATION IDENTIFIED [None]
